FAERS Safety Report 8102534 (Version 5)
Quarter: 2012Q4

REPORT INFORMATION
  Report Type: 
  Country: US (occurrence: US)
  Receive Date: 20110823
  Receipt Date: 20121002
  Transmission Date: 20130627
  Serious: Yes (Death, Hospitalization)
  Sender: FDA-Public Use
  Company Number: US-GLAXOSMITHKLINE-A0653041A

PATIENT
  Age: 82 Year
  Sex: Male

DRUGS (8)
  1. AVANDIA [Suspect]
     Indication: TYPE 2 DIABETES MELLITUS
     Route: 048
     Dates: start: 199911, end: 20090807
  2. ZETIA [Concomitant]
  3. PRANDIN [Concomitant]
  4. EXCEDRIN [Concomitant]
  5. CRESTOR [Concomitant]
  6. HYDRALAZINE [Concomitant]
  7. PLAVIX [Concomitant]
  8. NORVASC [Concomitant]

REACTIONS (4)
  - Cerebrovascular accident [Unknown]
  - Myocardial infarction [Unknown]
  - Cardiac death [Fatal]
  - Coronary artery disease [Unknown]
